FAERS Safety Report 4661532-4 (Version None)
Quarter: 2005Q2

REPORT INFORMATION
  Report Type: 
  Country: None (occurrence: None)
  Receive Date: 20050513
  Receipt Date: 20050501
  Transmission Date: 20051028
  Serious: Yes (Hospitalization)
  Sender: FDA-Public Use
  Company Number: US-GLAXOSMITHKLINE-A0556814A

PATIENT
  Age: 78 Year
  Sex: Female

DRUGS (1)
  1. GAVISCON [Suspect]
     Route: 048

REACTIONS (2)
  - DRUG ADMINISTRATION ERROR [None]
  - ELECTROCARDIOGRAM ABNORMAL [None]
